FAERS Safety Report 18688659 (Version 1)
Quarter: 2020Q4

REPORT INFORMATION
  Report Type: Spontaneous
  Country: US (occurrence: US)
  Receive Date: 20201231
  Receipt Date: 20201231
  Transmission Date: 20210114
  Serious: Yes (Hospitalization)
  Sender: FDA-Public Use
  Company Number: None

PATIENT
  Age: 95 Year
  Sex: Female
  Weight: 59.5 kg

DRUGS (13)
  1. FUROSEMIDE 20 MG [Concomitant]
     Active Substance: FUROSEMIDE
  2. IMDUR 30 MG [Concomitant]
  3. SIMVASTATIN 40 MG [Concomitant]
     Active Substance: SIMVASTATIN
  4. CIPROFLOXACIN. [Suspect]
     Active Substance: CIPROFLOXACIN
     Indication: URINARY TRACT INFECTION
     Dates: start: 20201230
  5. LISINOPRIL 20 MG [Concomitant]
     Active Substance: LISINOPRIL
  6. LORAZEPAM 1 MG [Concomitant]
     Active Substance: LORAZEPAM
  7. METOPROLOL XL 25 MG [Concomitant]
  8. NOVOLOG MIX 70/30 [Concomitant]
     Active Substance: INSULIN ASPART
  9. KCL 10 MEQ [Concomitant]
  10. LORATADINE 10 MG [Concomitant]
     Active Substance: LORATADINE
  11. ASPIRIN 81 MG [Concomitant]
     Active Substance: ASPIRIN
  12. CLOPIDOGREL [Concomitant]
     Active Substance: CLOPIDOGREL BISULFATE
  13. FAMOTIDINE 20 MG [Concomitant]
     Active Substance: FAMOTIDINE

REACTIONS (4)
  - Aphasia [None]
  - Acute myocardial infarction [None]
  - Gait disturbance [None]
  - Staring [None]

NARRATIVE: CASE EVENT DATE: 20201230
